FAERS Safety Report 9888761 (Version 1)
Quarter: 2014Q1

REPORT INFORMATION
  Report Type: Spontaneous
  Country: CA (occurrence: CA)
  Receive Date: 20140211
  Receipt Date: 20140211
  Transmission Date: 20141002
  Serious: Yes (Other)
  Sender: FDA-Public Use
  Company Number: CA-ASTRAZENECA-2014SE08483

PATIENT
  Age: 33 Year
  Sex: 0

DRUGS (4)
  1. SEROQUEL [Suspect]
     Route: 048
  2. RISPERDAL [Suspect]
     Route: 065
  3. ZYPREXA ZYDIS [Suspect]
     Route: 048
  4. CELEXA [Concomitant]

REACTIONS (1)
  - Tic [Unknown]
